FAERS Safety Report 5714637-0 (Version None)
Quarter: 2008Q2

REPORT INFORMATION
  Report Type: 
  Country: None (occurrence: None)
  Receive Date: 20080423
  Receipt Date: 20080418
  Transmission Date: 20081010
  Serious: Yes (Other)
  Sender: FDA-Public Use
  Company Number: B0517715A

PATIENT
  Age: 20 Year
  Sex: Female

DRUGS (1)
  1. AUGMENTIN '125' [Suspect]
     Indication: BARTHOLIN'S ABSCESS
     Route: 065
     Dates: start: 20080403, end: 20080406

REACTIONS (3)
  - AGEUSIA [None]
  - ANOSMIA [None]
  - GLOSSODYNIA [None]
